FAERS Safety Report 4556578-0 (Version None)
Quarter: 2005Q1

REPORT INFORMATION
  Report Type: 
  Country: None (occurrence: None)
  Receive Date: 20050118
  Receipt Date: 20050103
  Transmission Date: 20050727
  Serious: Yes (Other)
  Sender: FDA-Public Use
  Company Number: 2005002315

PATIENT
  Sex: Female
  Weight: 83.9154 kg

DRUGS (9)
  1. CELEBREX [Suspect]
     Indication: ARTHRITIS
     Dosage: 400 MG (200 MG, 2 IN 1 D)
  2. TRAMADOL HCL [Concomitant]
  3. MECLOZINE (MECLOZINE) [Concomitant]
  4. PROVELLA-14 (ESTROGENS CONJUGATED, MEDROXYPROGESTERONE ACETATE) [Concomitant]
  5. PRAMIPEXOLE (PRAMIPEXOLE) [Concomitant]
  6. ANTIHYPERTENSIVES (ANTIHYPERTENSIVES) [Concomitant]
  7. ASPIRIN [Concomitant]
  8. VITAMINS (VITAMINS) [Concomitant]
  9. ALL OTHER THERAPEUTIC PRODUCTS (ALL OTHER THERAPEUTIC PRODUCTS) [Concomitant]

REACTIONS (6)
  - ARTHRALGIA [None]
  - BLOOD PRESSURE ABNORMAL [None]
  - BODY HEIGHT DECREASED [None]
  - CARDIAC OPERATION [None]
  - POST PROCEDURAL COMPLICATION [None]
  - TREATMENT NONCOMPLIANCE [None]
